FAERS Safety Report 11436232 (Version 1)
Quarter: 2015Q3

REPORT INFORMATION
  Report Type: Spontaneous
  Country: US (occurrence: US)
  Receive Date: 20150821
  Receipt Date: 20150821
  Transmission Date: 20151125
  Serious: No
  Sender: FDA-Public Use
  Company Number: US-ELI_LILLY_AND_COMPANY-US201404004033

PATIENT
  Sex: Male

DRUGS (2)
  1. ANDROGEL [Concomitant]
     Active Substance: TESTOSTERONE
     Dosage: 40.5 MG, QD
  2. CIALIS [Suspect]
     Active Substance: TADALAFIL
     Indication: BENIGN PROSTATIC HYPERPLASIA
     Dosage: 5 MG, QD
     Route: 065
     Dates: start: 20140404

REACTIONS (9)
  - Nasal congestion [Unknown]
  - Insomnia [Unknown]
  - Fatigue [Unknown]
  - Limb discomfort [Unknown]
  - Pain in extremity [Unknown]
  - Back pain [Unknown]
  - Cough [Unknown]
  - Eyelid oedema [Unknown]
  - Gastrooesophageal reflux disease [Unknown]
